FAERS Safety Report 24033477 (Version 2)
Quarter: 2024Q3

REPORT INFORMATION
  Report Type: Spontaneous
  Country: US (occurrence: US)
  Receive Date: 20240701
  Receipt Date: 20240827
  Transmission Date: 20241017
  Serious: No
  Sender: BAUSCH AND LOMB
  Company Number: US-BAUSCHBL-2024BNL028976

PATIENT
  Sex: Female

DRUGS (2)
  1. XIIDRA [Suspect]
     Active Substance: LIFITEGRAST
     Indication: Product used for unknown indication
     Route: 047
     Dates: start: 202406, end: 202406
  2. XIIDRA [Suspect]
     Active Substance: LIFITEGRAST
     Route: 047
     Dates: start: 202406

REACTIONS (9)
  - Dry eye [Unknown]
  - Lacrimation increased [Unknown]
  - Eye disorder [Unknown]
  - Rhinorrhoea [Unknown]
  - Eyelid margin crusting [Unknown]
  - Exposure via skin contact [Unknown]
  - Accidental exposure to product [Unknown]
  - Patient dissatisfaction with treatment [Unknown]
  - Inappropriate schedule of product administration [Unknown]

NARRATIVE: CASE EVENT DATE: 20240601
